FAERS Safety Report 10232606 (Version 1)
Quarter: 2014Q2

REPORT INFORMATION
  Report Type: Report from Study
  Country: NL (occurrence: NL)
  Receive Date: 20140612
  Receipt Date: 20140612
  Transmission Date: 20141212
  Serious: Yes (Death)
  Sender: FDA-Public Use
  Company Number: NL-CELGENEUS-114-21880-14060007

PATIENT
  Age: 75 Year
  Sex: Male
  Weight: 88 kg

DRUGS (6)
  1. REVLIMID [Suspect]
     Indication: ACUTE MYELOID LEUKAEMIA
     Dosage: 20 MILLIGRAM
     Route: 048
     Dates: start: 20140508, end: 20140526
  2. CYTARABINE [Suspect]
     Indication: ACUTE MYELOID LEUKAEMIA
     Route: 041
     Dates: start: 20140508
  3. MEROPENEM [Concomitant]
     Indication: PYREXIA
     Dosage: 2000 MILLIGRAM
     Route: 041
     Dates: start: 20140326, end: 20140529
  4. MEROPENEM [Concomitant]
     Indication: DYSPNOEA
  5. PIPERACILLIN/TAZOBACTAM [Concomitant]
     Indication: PYREXIA
     Dosage: 13500 MILLIGRAM
     Route: 041
     Dates: start: 20140523, end: 20140526
  6. METOPROLOL [Concomitant]
     Indication: ATRIAL FIBRILLATION
     Dosage: 50 MILLIGRAM
     Route: 048
     Dates: start: 20140506, end: 20140529

REACTIONS (1)
  - Sepsis [Fatal]
